FAERS Safety Report 8013675 (Version 2)
Quarter: 2013Q1

REPORT INFORMATION
  Report Type: Spontaneous
  Country: US (occurrence: IN)
  Receive Date: 20110628
  Receipt Date: 20130125
  Transmission Date: 20140127
  Serious: Yes (Hospitalization, Other)
  Sender: FDA-Public Use
  Company Number: IN-PFIZER INC-2011111352

PATIENT
  Age: 54 Year
  Sex: Male

DRUGS (4)
  1. VANCOMYCIN HCL [Suspect]
     Indication: CELLULITIS
     Dosage: UNK
  2. PIPERACILLIN/TAZOBACTAM [Suspect]
     Indication: CELLULITIS
     Dosage: UNK
  3. HEPARIN [Concomitant]
     Indication: PROPHYLAXIS
  4. LEVOFLOXACIN [Concomitant]
     Indication: CELLULITIS

REACTIONS (7)
  - Thrombocytopenia [Recovered/Resolved]
  - Renal failure acute [Unknown]
  - Renal tubular necrosis [Unknown]
  - Urinary casts [Unknown]
  - Blood creatinine increased [Unknown]
  - Oliguria [Unknown]
  - Petechiae [Recovered/Resolved]
